FAERS Safety Report 7071604-5 (Version None)
Quarter: 2010Q4

REPORT INFORMATION
  Report Type: 
  Country: None (occurrence: None)
  Receive Date: 20101029
  Receipt Date: 20090925
  Transmission Date: 20110411
  Serious: No
  Sender: FDA-Public Use
  Company Number: A0809085A

PATIENT
  Age: 70 Year
  Sex: Male

DRUGS (4)
  1. ADVAIR DISKUS 100/50 [Suspect]
     Indication: ASTHMA
     Dosage: 1MG TWICE PER DAY
     Route: 055
     Dates: start: 20030101, end: 20070101
  2. LISINOPRIL [Concomitant]
  3. SIMVASTATIN [Concomitant]
  4. WARFARIN SODIUM [Concomitant]

REACTIONS (1)
  - APHONIA [None]
